FAERS Safety Report 14695495 (Version 2)
Quarter: 2018Q2

REPORT INFORMATION
  Report Type: Spontaneous
  Country: BR (occurrence: BR)
  Receive Date: 20180329
  Receipt Date: 20180413
  Transmission Date: 20180711
  Serious: Yes (Hospitalization, Other)
  Sender: FDA-Public Use
  Company Number: BR-TAKEDA-2018TUS007838

PATIENT
  Age: 61 Year
  Sex: Male

DRUGS (9)
  1. DONAREN [Suspect]
     Active Substance: TRAZODONE HYDROCHLORIDE
     Dosage: 75 MG, UNK
     Route: 065
  2. PANTOPRAZOLE [Concomitant]
     Active Substance: PANTOPRAZOLE
     Dosage: UNK
     Route: 065
  3. BACLOFEN. [Concomitant]
     Active Substance: BACLOFEN
     Dosage: UNK
     Route: 065
  4. BRINTELLIX [Suspect]
     Active Substance: VORTIOXETINE HYDROBROMIDE
     Indication: DEPRESSION
     Dosage: 5 MG, QD
     Route: 065
  5. LOSARTAN. [Concomitant]
     Active Substance: LOSARTAN
     Dosage: UNK
     Route: 065
  6. RETEMIC [Concomitant]
     Active Substance: OXYBUTYNIN CHLORIDE
     Dosage: UNK
     Route: 065
  7. ALCOHOL. [Concomitant]
     Active Substance: ALCOHOL
     Dosage: UNK UNK, QD
     Route: 065
  8. DONAREN [Suspect]
     Active Substance: TRAZODONE HYDROCHLORIDE
     Indication: INSOMNIA
     Dosage: 50 MG, UNK
     Route: 065
  9. DORENE [Concomitant]
     Dosage: UNK
     Route: 065

REACTIONS (6)
  - Confusional state [Unknown]
  - Somnolence [Unknown]
  - Agitation [Unknown]
  - Acute hepatic failure [Unknown]
  - Renal failure [Unknown]
  - Shock [Unknown]
